FAERS Safety Report 11188516 (Version 4)
Quarter: 2015Q3

REPORT INFORMATION
  Report Type: Spontaneous
  Country: US (occurrence: None)
  Receive Date: 20150611
  Receipt Date: 20150805
  Transmission Date: 20151125
  Serious: Yes (Other)
  Sender: FDA-Public Use
  Company Number: ADR-2015-01099

PATIENT
  Age: 69 Year
  Sex: Male

DRUGS (3)
  1. COMPOUNDED MORPHINE [Suspect]
     Active Substance: MORPHINE
  2. BUPIVACAINE INTRATHECAL [Suspect]
     Active Substance: BUPIVACAINE
     Indication: PAIN
  3. COMPOUNDED BACLOFEN INTRATHECAL [Suspect]
     Active Substance: BACLOFEN
     Indication: PAIN

REACTIONS (7)
  - Diarrhoea [None]
  - Memory impairment [None]
  - Device power source issue [None]
  - Influenza like illness [None]
  - Tremor [None]
  - Malaise [None]
  - Nausea [None]

NARRATIVE: CASE EVENT DATE: 20150528
